FAERS Safety Report 19889941 (Version 1)
Quarter: 2021Q3

REPORT INFORMATION
  Report Type: Report from Study
  Country: DE (occurrence: DE)
  Receive Date: 20210928
  Receipt Date: 20210928
  Transmission Date: 20211014
  Serious: Yes (Other)
  Sender: FDA-Public Use
  Company Number: DE-MYLANLABS-2021M1065699

PATIENT
  Sex: Female
  Weight: 88 kg

DRUGS (3)
  1. KISQALI [Suspect]
     Active Substance: RIBOCICLIB
     Indication: BREAST CANCER
     Dosage: 600 MILLIGRAM, QD
     Route: 048
     Dates: start: 20200120
  2. KISQALI [Suspect]
     Active Substance: RIBOCICLIB
     Dosage: 1800 MG, QD
     Route: 048
     Dates: start: 20200120
  3. LETROZOLE. [Suspect]
     Active Substance: LETROZOLE
     Indication: BREAST CANCER
     Dosage: 2.5 MG, QD
     Route: 048
     Dates: start: 20200120

REACTIONS (3)
  - Neutropenia [Recovered/Resolved]
  - Skin reaction [Unknown]
  - Overdose [Unknown]

NARRATIVE: CASE EVENT DATE: 20200810
